FAERS Safety Report 7930334-5 (Version None)
Quarter: 2011Q4

REPORT INFORMATION
  Report Type: 
  Country: None (occurrence: None)
  Receive Date: 20111121
  Receipt Date: 20111116
  Transmission Date: 20120403
  Serious: Yes (Death)
  Sender: FDA-Public Use
  Company Number: JP-ELI_LILLY_AND_COMPANY-JP201111005197

PATIENT
  Age: 61 Year
  Sex: Male

DRUGS (3)
  1. GEMZAR [Suspect]
     Indication: LUNG SQUAMOUS CELL CARCINOMA RECURRENT
     Dosage: UNK, TOTAL FOUR CYCLE
     Route: 042
     Dates: start: 20071001, end: 20080201
  2. CARBOPLATIN [Concomitant]
     Indication: LUNG SQUAMOUS CELL CARCINOMA RECURRENT
     Dosage: UNK, TOTAL FOUR CYCLE
     Route: 042
     Dates: start: 20071001, end: 20080201
  3. DOCETAXEL [Concomitant]
     Indication: LUNG SQUAMOUS CELL CARCINOMA RECURRENT
     Dosage: 100 MG, OTHER
     Route: 042
     Dates: start: 20080301

REACTIONS (1)
  - INTERSTITIAL LUNG DISEASE [None]
